FAERS Safety Report 6791543 (Version 1)
Quarter: 2020Q3

REPORT INFORMATION
  Report Type: Report from Study
  Country: DE (occurrence: DE)
  Receive Date: 20081020
  Receipt Date: 20081020
  Transmission Date: 20201105
  Serious: Yes (Other)
  Sender: FDA-Public Use
  Company Number: DE-ROCHE-590065

PATIENT
  Age: 66 Year
  Sex: Male

DRUGS (2)
  1. IBANDRONIC ACID. [Suspect]
     Active Substance: IBANDRONIC ACID
     Indication: PLASMA CELL MYELOMA
     Route: 065
  2. ZOLEDRONATE [Suspect]
     Active Substance: ZOLEDRONIC ACID
     Indication: PLASMA CELL MYELOMA
     Dosage: THERAPY DURATION: 89 MONTHS AT THE TIME OF BONE EXPOSURE.
     Route: 065

REACTIONS (1)
  - Osteonecrosis [Unknown]
